FAERS Safety Report 9887664 (Version 2)
Quarter: 2014Q1

REPORT INFORMATION
  Report Type: Report from Study
  Country: IT (occurrence: IT)
  Receive Date: 20140211
  Receipt Date: 20140211
  Transmission Date: 20141002
  Serious: Yes (Other)
  Sender: FDA-Public Use
  Company Number: IT-MYLANLABS-2013S1025458

PATIENT
  Sex: 0

DRUGS (4)
  1. ESCITALOPRAM [Suspect]
     Route: 064
  2. PAROXETINE [Suspect]
     Dosage: 20-40MG/DAY
     Route: 064
  3. CLONAZEPAM [Suspect]
     Route: 064
  4. LORAZEPAM [Suspect]
     Route: 064

REACTIONS (3)
  - Drug withdrawal syndrome neonatal [Recovered/Resolved]
  - Hypoglycaemia [Recovered/Resolved]
  - Foetal exposure during pregnancy [Recovered/Resolved]
